FAERS Safety Report 10649891 (Version 2)
Quarter: 2015Q1

REPORT INFORMATION
  Report Type: Spontaneous
  Country: CA (occurrence: CA)
  Receive Date: 20141212
  Receipt Date: 20150120
  Transmission Date: 20150720
  Serious: Yes (Other)
  Sender: FDA-Public Use
  Company Number: CA-ASTRAZENECA-2014SE94169

PATIENT
  Age: 41 Year
  Sex: Female

DRUGS (2)
  1. SYMBICORT [Suspect]
     Active Substance: BUDESONIDE\FORMOTEROL FUMARATE DIHYDRATE
     Indication: ASTHMA
     Dosage: 200/6 MCG, UNKNOWN
     Route: 055
     Dates: start: 20141118
  2. SYMBICORT [Suspect]
     Active Substance: BUDESONIDE\FORMOTEROL FUMARATE DIHYDRATE
     Indication: ASTHMA
     Dosage: 200/6 UG, UNKNOWN
     Route: 055

REACTIONS (3)
  - Drug ineffective [Unknown]
  - Wheezing [Recovering/Resolving]
  - Dyspnoea [Recovering/Resolving]
